FAERS Safety Report 7718099-3 (Version None)
Quarter: 2011Q3

REPORT INFORMATION
  Report Type: 
  Country: None (occurrence: None)
  Receive Date: 20110830
  Receipt Date: 20110822
  Transmission Date: 20111222
  Serious: Yes (Other)
  Sender: FDA-Public Use
  Company Number: US-JNJFOC-20110810489

PATIENT
  Sex: Female
  Weight: 71.22 kg

DRUGS (2)
  1. REMICADE [Suspect]
     Indication: RHEUMATOID ARTHRITIS
     Route: 042
     Dates: start: 20110502, end: 20110613
  2. METHOTREXATE [Suspect]
     Indication: PRODUCT USED FOR UNKNOWN INDICATION

REACTIONS (8)
  - WHEEZING [None]
  - GLOSSODYNIA [None]
  - PHARYNGITIS [None]
  - BURNING SENSATION [None]
  - ABNORMAL LOSS OF WEIGHT [None]
  - OESOPHAGEAL PAIN [None]
  - APHAGIA [None]
  - ERYTHEMA [None]
